FAERS Safety Report 11382903 (Version 1)
Quarter: 2015Q3

REPORT INFORMATION
  Report Type: Spontaneous
  Country: AU (occurrence: AU)
  Receive Date: 20150814
  Receipt Date: 20150814
  Transmission Date: 20151125
  Serious: Yes (Other)
  Sender: FDA-Public Use
  Company Number: AU-PFIZER INC-2015266102

PATIENT
  Sex: Female

DRUGS (1)
  1. PRISTIQ EXTENDED RELEASE [Suspect]
     Active Substance: DESVENLAFAXINE SUCCINATE
     Dosage: 50 MG, UNK

REACTIONS (9)
  - Lethargy [Not Recovered/Not Resolved]
  - Occipital neuralgia [Recovering/Resolving]
  - Feeling abnormal [Unknown]
  - Paraesthesia [Unknown]
  - Seizure [Unknown]
  - Migraine [Unknown]
  - Neuralgia [Recovering/Resolving]
  - Drug withdrawal syndrome [Unknown]
  - Malaise [Recovered/Resolved]
